FAERS Safety Report 11344127 (Version 1)
Quarter: 2015Q3

REPORT INFORMATION
  Report Type: Spontaneous
  Country: CN (occurrence: CN)
  Receive Date: 20150806
  Receipt Date: 20150806
  Transmission Date: 20151125
  Serious: Yes (Other)
  Sender: FDA-Public Use
  Company Number: CN-JNJFOC-20150800953

PATIENT

DRUGS (1)
  1. ITRACONAZOLE. [Suspect]
     Active Substance: ITRACONAZOLE
     Indication: PRODUCT USED FOR UNKNOWN INDICATION
     Route: 065

REACTIONS (9)
  - Nerve injury [Unknown]
  - Hypersensitivity [Unknown]
  - Oedema [Unknown]
  - Cardiac disorder [Unknown]
  - Renal injury [Unknown]
  - Eye injury [Unknown]
  - Familial periodic paralysis [Unknown]
  - Gastrointestinal disorder [Unknown]
  - Hypokalaemia [Unknown]
